FAERS Safety Report 21251861 (Version 1)
Quarter: 2022Q3

REPORT INFORMATION
  Report Type: Spontaneous
  Country: NL (occurrence: NL)
  Receive Date: 20220825
  Receipt Date: 20220825
  Transmission Date: 20221026
  Serious: Yes (Hospitalization)
  Sender: FDA-Public Use
  Company Number: None

PATIENT
  Age: 54 Year
  Sex: Female
  Weight: 95 kg

DRUGS (5)
  1. TRIMETHOPRIM [Suspect]
     Active Substance: TRIMETHOPRIM
     Indication: Urinary tract infection
     Dosage: 1D1, TRIMETHOPRIM TABLET 300MG / BRAND NAME NOT SPECIFIED, DURATION : 5 DAYS
     Dates: start: 20220112, end: 20220117
  2. METOCLOPRAMIDE [Concomitant]
     Active Substance: METOCLOPRAMIDE
     Indication: Product used for unknown indication
     Dosage: METOCLOPRAMIDE TABLET 10MG / BRAND NAME NOT SPECIFIED, THERAPY START DATE AND END DATE : ASKU
  3. OMEPRAZOLE [Concomitant]
     Active Substance: OMEPRAZOLE
     Indication: Product used for unknown indication
     Dosage: 1 DOSAGE FORMS DAILY; 1 X PER DAY 1 PIECE, OMEPRAZOL CAPSULE MSR 20MG / BRAND NAME NOT SPECIFIED, TH
  4. MEDROXYPROGESTERONE ACETATE [Concomitant]
     Active Substance: MEDROXYPROGESTERONE ACETATE
     Indication: Product used for unknown indication
     Dosage: 1 X PER 12 WEEKS 1 PIECE, MEDROXYPROGESTERONE INJSUSP 150MG/ML / BRAND NAME NOT SPECIFIED, THERAPY S
  5. HYDROCHLOROTHIAZIDE\IRBESARTAN [Concomitant]
     Active Substance: HYDROCHLOROTHIAZIDE\IRBESARTAN
     Indication: Product used for unknown indication
     Dosage: 1 DOSAGE FORMS DAILY; 1 X PER DAY 1 PIECE, IRBESARTAN/HYDROCHLOORTHIAZIDE TABLET 150/12,5MG / BRAND

REACTIONS (1)
  - Hepatitis [Recovered/Resolved]

NARRATIVE: CASE EVENT DATE: 20220114
